FAERS Safety Report 18262995 (Version 1)
Quarter: 2020Q3

REPORT INFORMATION
  Report Type: Spontaneous
  Country: US (occurrence: US)
  Receive Date: 20200914
  Receipt Date: 20200914
  Transmission Date: 20201103
  Serious: Yes (Death)
  Sender: FDA-Public Use
  Company Number: None

PATIENT
  Age: 74 Year
  Sex: Female
  Weight: 87.75 kg

DRUGS (14)
  1. VITAMIN B COMPLEX [Concomitant]
     Active Substance: CYANOCOBALAMIN\DEXPANTHENOL\NIACINAMIDE\PYRIDOXINE HYDROCHLORIDE\RIBOFLAVIN 5^-PHOSPHATE SODIUM\THIAMINE HYDROCHLORIDE\VITAMIN B COMPLEX
  2. HYDROCHLOROTHIAZIDE 25MG [Concomitant]
     Active Substance: HYDROCHLOROTHIAZIDE
  3. METFORMIN [Concomitant]
     Active Substance: METFORMIN HYDROCHLORIDE
  4. PROCHLORPERAZINE 10MG [Concomitant]
  5. ATENOLOL 100MG [Concomitant]
     Active Substance: ATENOLOL
  6. VITAMIN B12 100MCG [Concomitant]
  7. LOSARTAN 100MG [Concomitant]
     Active Substance: LOSARTAN
  8. FLUTICASONE 50MCG [Concomitant]
     Active Substance: FLUTICASONE
  9. SULFACETAMIDE 10% [Concomitant]
  10. XGEVA [Suspect]
     Active Substance: DENOSUMAB
     Dosage: ?          OTHER FREQUENCY:ONCE EVERY 28 DAYS;?
     Route: 058
     Dates: start: 20190307, end: 20200903
  11. NOVOLIN 70/30 [Concomitant]
     Active Substance: INSULIN HUMAN
  12. LORAZEPAM 0.5MG [Concomitant]
     Active Substance: LORAZEPAM
  13. VITAMIN D 1000UNIT [Concomitant]
  14. PRAVASTATIN. [Concomitant]
     Active Substance: PRAVASTATIN

REACTIONS (1)
  - Death [None]

NARRATIVE: CASE EVENT DATE: 20200903
